FAERS Safety Report 8806218 (Version 1)
Quarter: 2012Q4

REPORT INFORMATION
  Report Type: Spontaneous
  Country: US (occurrence: None)
  Receive Date: 20120919
  Receipt Date: 20120919
  Transmission Date: 20130627
  Serious: No
  Sender: FDA-Public Use
  Company Number: None

PATIENT

DRUGS (2)
  1. HYDRALAZINE HCL [Suspect]
     Dosage: 20 mg/ml vials 1ml
  2. LORAZEPAM [Suspect]
     Dosage: 2 mg/ml vials 1 ml

REACTIONS (1)
  - Drug dispensing error [None]
